FAERS Safety Report 25825457 (Version 2)
Quarter: 2025Q3

REPORT INFORMATION
  Report Type: Spontaneous
  Country: JP (occurrence: JP)
  Receive Date: 20250919
  Receipt Date: 20250923
  Transmission Date: 20251020
  Serious: Yes (Other)
  Sender: PFIZER
  Company Number: JP-PFIZER INC-PV202500112686

PATIENT
  Age: 60 Year

DRUGS (1)
  1. ELREXFIO [Suspect]
     Active Substance: ELRANATAMAB-BCMM
     Indication: Plasma cell myeloma refractory
     Route: 058
     Dates: start: 20250711

REACTIONS (1)
  - Hypokalaemia [Unknown]

NARRATIVE: CASE EVENT DATE: 20250801
